FAERS Safety Report 5059092-1 (Version None)
Quarter: 2006Q3

REPORT INFORMATION
  Report Type: 
  Country: None (occurrence: None)
  Receive Date: 20060718
  Receipt Date: 20060705
  Transmission Date: 20061208
  Serious: Yes (Hospitalization, Other)
  Sender: FDA-Public Use
  Company Number: 2006044703

PATIENT
  Age: 70 Year
  Sex: Female

DRUGS (1)
  1. BEXTRA [Suspect]
     Indication: DRUG USE FOR UNKNOWN INDICATION
     Dosage: 10 MG
     Dates: start: 20021201, end: 20041001

REACTIONS (1)
  - CEREBROVASCULAR ACCIDENT [None]
